FAERS Safety Report 6728088-3 (Version None)
Quarter: 2010Q2

REPORT INFORMATION
  Report Type: 
  Country: None (occurrence: None)
  Receive Date: 20100517
  Receipt Date: 20100506
  Transmission Date: 20101027
  Serious: Yes (Other)
  Sender: FDA-Public Use
  Company Number: GXKR2010US05103

PATIENT
  Age: 48 Year
  Sex: Female

DRUGS (50)
  1. METHOTREXATE [Suspect]
     Indication: BEHCET'S SYNDROME
     Dosage: TITRATED FROM 7.5 MG TO 20 MG PER WEEK
     Route: 065
     Dates: start: 19981001, end: 19990701
  2. CYCLOSPORINE [Suspect]
     Indication: BEHCET'S SYNDROME
     Dosage: UNK
     Route: 065
     Dates: start: 20000501, end: 20010601
  3. PREDNISONE TAB [Suspect]
     Indication: BEHCET'S SYNDROME
     Dosage: APPROXIMATELY 10 MG DAILY, OCCASIONAL PULSES
     Route: 065
  4. PLAQUENIL [Suspect]
     Indication: BEHCET'S SYNDROME
     Dosage: 300 MG/DAY
     Route: 065
     Dates: start: 19990701, end: 20020101
  5. PLAQUENIL [Suspect]
     Dosage: 20 DF, UNK
     Route: 048
  6. PLAQUENIL [Suspect]
     Dosage: 200 MG/DAY
     Route: 065
     Dates: start: 20020601
  7. PLAQUENIL [Suspect]
     Dosage: 200 MG, BID
     Route: 065
     Dates: start: 20040801
  8. DAPSONE [Suspect]
     Indication: BEHCET'S SYNDROME
     Dosage: TITRATED UP TO 100 MG, BID
     Route: 065
     Dates: start: 19990901, end: 20000501
  9. DAPSONE [Suspect]
     Dosage: TITRATED UP TO 50 MG DAILY
     Route: 065
     Dates: start: 20030601, end: 20050901
  10. COLCHICINE [Suspect]
     Indication: BEHCET'S SYNDROME
     Dosage: 6 MG, BID
     Route: 065
     Dates: start: 19991001, end: 20021201
  11. COLCHICINE [Suspect]
     Dosage: 6 MG, BID
     Route: 065
     Dates: start: 20040801
  12. CELLCEPT [Suspect]
     Indication: BEHCET'S SYNDROME
     Dosage: 1000 MG, BID
     Route: 065
     Dates: start: 20010101, end: 20010901
  13. LEUKERAN [Suspect]
     Indication: BEHCET'S SYNDROME
     Dosage: TITRATED UP TO 4 MG DAILY
     Route: 065
     Dates: start: 20011101
  14. LEUKERAN [Suspect]
     Dosage: 3 MG/DAY
     Route: 065
     Dates: start: 20020401
  15. LEUKERAN [Suspect]
     Dosage: 2 MG/DAY
     Route: 065
     Dates: start: 20020601, end: 20020901
  16. CYTOXAN [Suspect]
     Indication: BEHCET'S SYNDROME
     Dosage: 250 MG, UNK
     Route: 042
     Dates: start: 20021201
  17. CYTOXAN [Suspect]
     Dosage: 500 MG, UNK
     Route: 042
     Dates: start: 20030101
  18. CYTOXAN [Suspect]
     Dosage: 750 MG, UNK
     Route: 042
     Dates: start: 20030201
  19. CYTOXAN [Suspect]
     Dosage: 1000 MG, UNK
     Route: 042
     Dates: start: 20030301
  20. CYTOXAN [Suspect]
     Dosage: 1250 MG, UNK
     Route: 042
     Dates: start: 20030301, end: 20030401
  21. CYTOXAN [Suspect]
     Dosage: 500 MG, UNK
     Route: 042
     Dates: start: 20030501, end: 20050501
  22. CYTOXAN [Suspect]
     Dosage: 750 MG, UNK
     Route: 042
     Dates: start: 20030801
  23. CYTOXAN [Suspect]
     Dosage: 1000 MG, UNK
     Route: 042
     Dates: start: 20030901
  24. CYTOXAN [Suspect]
     Dosage: 500 MG, MONTHLY
     Route: 042
     Dates: end: 20040501
  25. ETANERCEPT [Suspect]
     Indication: BEHCET'S SYNDROME
     Dosage: 25 MG, QW2
     Route: 065
     Dates: start: 20040901, end: 20050201
  26. IMURAN [Suspect]
     Indication: BEHCET'S SYNDROME
     Dosage: TITRATED UP TO 150 MG DAILY
     Route: 065
     Dates: start: 20050201, end: 20050401
  27. IMURAN [Suspect]
     Dosage: TITRATED UP TO 150 MG DAILY
     Route: 065
     Dates: start: 20070101, end: 20070301
  28. REMICADE [Suspect]
     Indication: BEHCET'S SYNDROME
     Dosage: 200 MG, UNK
     Route: 042
     Dates: start: 20050401
  29. REMICADE [Suspect]
     Dosage: 400 MG, UNK
     Route: 042
     Dates: start: 20050501
  30. REMICADE [Suspect]
     Dosage: 300 MG, UNK
     Route: 042
     Dates: start: 20050701
  31. REMICADE [Suspect]
     Dosage: 400 MG, UNK
     Route: 042
     Dates: start: 20050901
  32. REMICADE [Suspect]
     Dosage: 400 MG, UNK
     Route: 042
     Dates: start: 20051101
  33. REMICADE [Suspect]
     Dosage: 400 MG, UNK
     Route: 042
     Dates: start: 20060101, end: 20060201
  34. RITUXAN [Suspect]
     Indication: BEHCET'S SYNDROME
     Dosage: 1000 MG, TWO DOSES
     Route: 042
     Dates: start: 20060601, end: 20060701
  35. ARAVA [Suspect]
     Indication: BEHCET'S SYNDROME
     Dosage: 20 MG/DAY
     Route: 065
     Dates: start: 20070601
  36. FLUOROURACIL [Concomitant]
  37. FUROSEMIDE [Concomitant]
  38. TERBUTALINE SULFATE [Concomitant]
  39. THEOPHYLLINE [Concomitant]
  40. FLUTICASONE W/SALMETEROL [Concomitant]
  41. ALBUTEROL SULFATE AND IPRATROPIUM BROMIDE [Concomitant]
  42. ESOMEPRAZOLE [Concomitant]
  43. ERYTHROMYCIN [Concomitant]
  44. PENTOXIFYLLINE [Concomitant]
  45. PREGABALIN [Concomitant]
  46. ACYCLOVIR [Concomitant]
  47. SERTRALINE HCL [Concomitant]
  48. FOLIC ACID [Concomitant]
  49. FENTANYL [Concomitant]
     Route: 062
  50. IMIQUIMOD [Concomitant]

REACTIONS (8)
  - ANAEMIA [None]
  - LEUKOPENIA [None]
  - MOUTH ULCERATION [None]
  - NAUSEA [None]
  - NEUTROPENIA [None]
  - PHOTODYNAMIC THERAPY [None]
  - RENAL FAILURE [None]
  - SQUAMOUS CELL CARCINOMA [None]
